FAERS Safety Report 15964738 (Version 1)
Quarter: 2019Q1

REPORT INFORMATION
  Report Type: Spontaneous
  Country: IT (occurrence: IT)
  Receive Date: 20190215
  Receipt Date: 20190215
  Transmission Date: 20190418
  Serious: Yes (Hospitalization)
  Sender: FDA-Public Use
  Company Number: IT-TEVA-2019-IT-1011179

PATIENT
  Age: 60 Year
  Sex: Male

DRUGS (14)
  1. URBASON /00049601/ [Concomitant]
     Active Substance: METHYLPREDNISOLONE
     Indication: PRODUCT USED FOR UNKNOWN INDICATION
     Route: 037
     Dates: start: 20091130
  2. DELTACORTENE [Concomitant]
     Active Substance: PREDNISONE
     Route: 048
     Dates: start: 20091130, end: 20091214
  3. DOXORUBICINA SANDOZ [Suspect]
     Active Substance: DOXORUBICIN HYDROCHLORIDE
     Indication: NON-HODGKIN^S LYMPHOMA
     Dosage: THERAPY POSTPONED
     Route: 042
     Dates: start: 20091130, end: 20091130
  4. ZYLORIC [Concomitant]
     Active Substance: ALLOPURINOL
     Route: 048
     Dates: start: 20091130, end: 20091214
  5. VINCRISTINA TEVA [Suspect]
     Active Substance: VINCRISTINE
     Indication: NON-HODGKIN^S LYMPHOMA
     Dosage: 2 MILLIGRAM DAILY; THERAPY POSTPONED. RESTARTED AT 1/3 OF THE DOSE.
     Route: 042
     Dates: start: 20091130, end: 20091130
  6. URBASON SOLUBILE [Concomitant]
     Active Substance: METHYLPREDNISOLONE SODIUM SUCCINATE
     Route: 037
     Dates: start: 20091130, end: 20091130
  7. METHOTREXATE (METHOTREXATE SODIUM) [Suspect]
     Active Substance: METHOTREXATE SODIUM
     Indication: NON-HODGKIN^S LYMPHOMA
     Dosage: POSTPONED DUE TO ADVERSE EVENTS
     Route: 037
     Dates: start: 20091129, end: 20091130
  8. KARVEA [Concomitant]
     Active Substance: IRBESARTAN
  9. UROMITEXAN [Concomitant]
     Active Substance: MESNA
     Route: 048
     Dates: start: 20091130, end: 20091214
  10. NEULASTA [Concomitant]
     Active Substance: PEGFILGRASTIM
     Route: 058
  11. GLIBOMET [Concomitant]
     Active Substance: GLYBURIDE\METFORMIN HYDROCHLORIDE
  12. BACTRIM [Concomitant]
     Active Substance: SULFAMETHOXAZOLE\TRIMETHOPRIM
     Route: 048
     Dates: start: 20091130, end: 20091214
  13. ENDOXAN BAXTER [Suspect]
     Active Substance: CYCLOPHOSPHAMIDE
     Indication: NON-HODGKIN^S LYMPHOMA
     Dosage: THERAPY POSTPONED
     Route: 042
     Dates: start: 20091130, end: 20091130
  14. CONCOR [Concomitant]
     Active Substance: BISOPROLOL FUMARATE

REACTIONS (2)
  - Paraesthesia [Recovered/Resolved]
  - Stomatitis [Recovered/Resolved]

NARRATIVE: CASE EVENT DATE: 20091214
